FAERS Safety Report 13043604 (Version 3)
Quarter: 2017Q1

REPORT INFORMATION
  Report Type: Report from Study
  Country: None (occurrence: US)
  Receive Date: 20161220
  Receipt Date: 20170301
  Transmission Date: 20170428
  Serious: Yes (Other)
  Sender: FDA-Public Use
  Company Number: US-ABBVIE-16K-163-1810292-00

PATIENT
  Sex: Female

DRUGS (2)
  1. HUMIRA [Suspect]
     Active Substance: ADALIMUMAB
     Route: 058
     Dates: end: 201701
  2. HUMIRA [Suspect]
     Active Substance: ADALIMUMAB
     Indication: ANKYLOSING SPONDYLITIS
     Route: 058
     Dates: start: 201605, end: 201611

REACTIONS (11)
  - Musculoskeletal stiffness [Unknown]
  - Arthralgia [Unknown]
  - Rhinorrhoea [Unknown]
  - Rash papular [Unknown]
  - General physical health deterioration [Unknown]
  - Back pain [Unknown]
  - Cat scratch disease [Unknown]
  - Cat scratch disease [Recovered/Resolved]
  - Lymphadenopathy [Unknown]
  - Oropharyngeal pain [Unknown]
  - Neck pain [Unknown]

NARRATIVE: CASE EVENT DATE: 2016
